FAERS Safety Report 5885023-8 (Version None)
Quarter: 2008Q3

REPORT INFORMATION
  Report Type: 
  Country: None (occurrence: None)
  Receive Date: 20080915
  Receipt Date: 20080915
  Transmission Date: 20090109
  Serious: Yes (Life-Threatening, Other)
  Sender: FDA-Public Use
  Company Number: None

PATIENT
  Age: 48 Year
  Sex: Female
  Weight: 72.5755 kg

DRUGS (6)
  1. BUDEPRION XL 300 MG TEVA [Suspect]
     Indication: BIPOLAR II DISORDER
     Dosage: 300 MG 1 A DAY PO
     Route: 048
     Dates: start: 20070930, end: 20071004
  2. LAMICTAL [Concomitant]
  3. PREVACID [Concomitant]
  4. PROVIGIL [Concomitant]
  5. AMBIEN CR [Concomitant]
  6. ALPRAZOLAM [Concomitant]

REACTIONS (7)
  - ANGER [None]
  - CRYING [None]
  - FEELING OF DESPAIR [None]
  - PARANOIA [None]
  - SLEEP DISORDER [None]
  - SUICIDAL IDEATION [None]
  - THERAPEUTIC RESPONSE UNEXPECTED WITH DRUG SUBSTITUTION [None]
